FAERS Safety Report 20581502 (Version 1)
Quarter: 2022Q1

REPORT INFORMATION
  Report Type: Spontaneous
  Country: US (occurrence: US)
  Receive Date: 20220311
  Receipt Date: 20220311
  Transmission Date: 20220424
  Serious: No
  Sender: FDA-Public Use
  Company Number: US-CELGENE-USA-20220303107

PATIENT
  Sex: Male

DRUGS (1)
  1. ISTODAX [Suspect]
     Active Substance: ROMIDEPSIN
     Indication: Product used for unknown indication
     Dosage: DOSE : UNAVAILABLE; FREQ : INFUSE 26MG INTRAVENOUSLY ON DAYS 1 8 AND 15 EVERY 28 DAYS
     Route: 041

REACTIONS (1)
  - Weight decreased [Unknown]
